FAERS Safety Report 15897032 (Version 7)
Quarter: 2023Q4

REPORT INFORMATION
  Report Type: Spontaneous
  Country: US (occurrence: US)
  Receive Date: 20190131
  Receipt Date: 20231017
  Transmission Date: 20240109
  Serious: Yes (Hospitalization)
  Sender: FDA-Public Use
  Company Number: US-PFIZER INC-2018426768

PATIENT
  Age: 67 Year
  Sex: Female

DRUGS (2)
  1. XELJANZ XR [Suspect]
     Active Substance: TOFACITINIB CITRATE
     Indication: Rheumatoid arthritis
     Dosage: 11 MG, 1X/DAY
     Route: 048
  2. HYDROXYCHLOROQUINE [Concomitant]
     Active Substance: HYDROXYCHLOROQUINE
     Indication: Rheumatoid arthritis
     Dosage: UNK

REACTIONS (11)
  - Illness [Unknown]
  - Gallbladder operation [Recovered/Resolved]
  - Intervertebral disc protrusion [Recovered/Resolved]
  - Meniscus injury [Not Recovered/Not Resolved]
  - Knee arthroplasty [Not Recovered/Not Resolved]
  - Limb discomfort [Unknown]
  - Musculoskeletal discomfort [Unknown]
  - Condition aggravated [Unknown]
  - Swelling [Unknown]
  - Injury [Unknown]
  - Malaise [Unknown]

NARRATIVE: CASE EVENT DATE: 20190101
